FAERS Safety Report 16310902 (Version 1)
Quarter: 2019Q2

REPORT INFORMATION
  Report Type: Spontaneous
  Country: US (occurrence: US)
  Receive Date: 20190513
  Receipt Date: 20190513
  Transmission Date: 20190711
  Serious: Yes (Disabling)
  Sender: FDA-Public Use
  Company Number: None

PATIENT
  Sex: Female

DRUGS (1)
  1. MYLAN BRAND ALBUTEROL 4 MG PILL [Suspect]
     Active Substance: ALBUTEROL

REACTIONS (4)
  - Bladder pain [None]
  - Product substitution issue [None]
  - Product odour abnormal [None]
  - Urethral pain [None]

NARRATIVE: CASE EVENT DATE: 20181205
